FAERS Safety Report 11659770 (Version 1)
Quarter: 2015Q4

REPORT INFORMATION
  Report Type: Spontaneous
  Country: US (occurrence: US)
  Receive Date: 20151026
  Receipt Date: 20151026
  Transmission Date: 20160304
  Serious: No
  Sender: FDA-Public Use
  Company Number: US-MEDA-2015100047

PATIENT
  Age: 59 Year
  Sex: Female
  Weight: 59 kg

DRUGS (1)
  1. AZELASTINE HYDROCHLORIDE. [Suspect]
     Active Substance: AZELASTINE HYDROCHLORIDE
     Indication: ALLERGIC SINUSITIS
     Dates: start: 201510, end: 201510

REACTIONS (4)
  - Irritability [Recovered/Resolved]
  - Somnolence [Recovered/Resolved]
  - Anxiety [Recovered/Resolved]
  - Palpitations [Recovered/Resolved]

NARRATIVE: CASE EVENT DATE: 201510
